FAERS Safety Report 9045131 (Version 1)
Quarter: 2013Q1

REPORT INFORMATION
  Report Type: Report from Study
  Country: US (occurrence: US)
  Receive Date: 20130130
  Receipt Date: 20130130
  Transmission Date: 20140127
  Serious: No
  Sender: FDA-Public Use
  Company Number: US-ABBOTT-12P-163-0969469-00

PATIENT
  Age: 56 Year
  Sex: Female

DRUGS (9)
  1. HUMIRA 40 MG/0.8 ML PEN [Suspect]
     Indication: CROHN^S DISEASE
     Dates: start: 20120801, end: 20120801
  2. HUMIRA 40 MG/0.8 ML PEN [Suspect]
     Dates: start: 20120815
  3. FAMOTIDINE [Concomitant]
     Indication: DYSPEPSIA
  4. DICYCLOMINE [Concomitant]
     Indication: CROHN^S DISEASE
  5. GEMFIBROZIL [Concomitant]
     Indication: BLOOD ELECTROLYTES
  6. ONE A DAY WOMEN^S [Concomitant]
     Indication: PRODUCT USED FOR UNKNOWN INDICATION
     Dosage: DAILY
  7. VITAMIN B 12 [Concomitant]
     Indication: PRODUCT USED FOR UNKNOWN INDICATION
     Dosage: DAILY
  8. C [Concomitant]
     Indication: PRODUCT USED FOR UNKNOWN INDICATION
     Dosage: DAILY
  9. D [Concomitant]
     Indication: PRODUCT USED FOR UNKNOWN INDICATION
     Dosage: DAILY

REACTIONS (2)
  - Sensation of heaviness [Recovered/Resolved]
  - Pain in extremity [Recovered/Resolved]
